FAERS Safety Report 10434061 (Version 2)
Quarter: 2014Q4

REPORT INFORMATION
  Report Type: Spontaneous
  Country: BE (occurrence: BE)
  Receive Date: 20140905
  Receipt Date: 20141008
  Transmission Date: 20150528
  Serious: Yes (Death, Life-Threatening, Hospitalization)
  Sender: FDA-Public Use
  Company Number: BE-JNJFOC-20140825477

PATIENT
  Sex: Male
  Weight: 94 kg

DRUGS (5)
  1. LUCRIN [Concomitant]
     Active Substance: LEUPROLIDE ACETATE
     Route: 065
  2. PREDNISONE. [Concomitant]
     Active Substance: PREDNISONE
     Route: 065
  3. XGEVA [Concomitant]
     Active Substance: DENOSUMAB
     Route: 065
  4. ZYTIGA [Suspect]
     Active Substance: ABIRATERONE ACETATE
     Indication: PROSTATE CANCER
     Route: 048
     Dates: start: 20140114, end: 20140818
  5. STEOVIT D3 [Concomitant]
     Route: 065

REACTIONS (1)
  - Hepatic failure [Fatal]
